FAERS Safety Report 13651826 (Version 1)
Quarter: 2017Q2

REPORT INFORMATION
  Report Type: Spontaneous
  Country: US (occurrence: US)
  Receive Date: 20170614
  Receipt Date: 20170614
  Transmission Date: 20170830
  Serious: No
  Sender: FDA-Public Use
  Company Number: US-BAYER-2017-113580

PATIENT
  Sex: Female
  Weight: 77.1 kg

DRUGS (4)
  1. ALEVE [Suspect]
     Active Substance: NAPROXEN SODIUM
  2. ADVIL [Concomitant]
     Active Substance: IBUPROFEN
     Indication: SCIATICA
     Dosage: 800 MG, Q4HR
     Dates: start: 20170522, end: 20170523
  3. IRON [Concomitant]
     Active Substance: IRON
     Indication: MINERAL SUPPLEMENTATION
     Dosage: UNK
     Dates: start: 201705
  4. THYROID [Concomitant]
     Active Substance: LEVOTHYROXINE\LIOTHYRONINE
     Dosage: 190 MG, BID

REACTIONS (2)
  - Drug ineffective [None]
  - Abdominal discomfort [None]
